FAERS Safety Report 8818627 (Version 2)
Quarter: 2015Q2

REPORT INFORMATION
  Report Type: Report from Study
  Country: US (occurrence: US)
  Receive Date: 20121001
  Receipt Date: 20150416
  Transmission Date: 20150821
  Serious: Yes (Death)
  Sender: FDA-Public Use
  Company Number: US-ROCHE-1123679

PATIENT
  Age: 53 Year
  Sex: Female

DRUGS (21)
  1. HERCEPTIN [Suspect]
     Active Substance: TRASTUZUMAB
     Indication: BREAST CANCER FEMALE
     Dosage: LOADING DOSE
     Route: 042
     Dates: start: 1997, end: 2004
  2. CYTOXAN [Concomitant]
     Active Substance: CYCLOPHOSPHAMIDE
  3. METHOTREXATE [Concomitant]
     Active Substance: METHOTREXATE
     Route: 065
     Dates: start: 1997
  4. NAVELBINE [Concomitant]
     Active Substance: VINORELBINE TARTRATE
  5. CARBOPLATIN. [Concomitant]
     Active Substance: CARBOPLATIN
     Dosage: 28/DEC
     Route: 042
  6. COUMADIN [Concomitant]
     Active Substance: WARFARIN SODIUM
  7. XELODA [Suspect]
     Active Substance: CAPECITABINE
     Indication: PRODUCT USED FOR UNKNOWN INDICATION
     Route: 048
     Dates: start: 200507
  8. ABRAXANE [Concomitant]
     Active Substance: PACLITAXEL
  9. HERCEPTIN [Suspect]
     Active Substance: TRASTUZUMAB
     Indication: HAEMATOLOGICAL MALIGNANCY
     Dosage: MAINTENANCE DOSE
     Route: 042
     Dates: start: 200507
  10. 5-FLUOROURACIL [Concomitant]
     Active Substance: FLUOROURACIL
     Route: 065
     Dates: start: 1997
  11. KYTRIL [Concomitant]
     Active Substance: GRANISETRON HYDROCHLORIDE
     Route: 065
  12. TAXOTERE [Concomitant]
     Active Substance: DOCETAXEL
     Route: 065
     Dates: start: 20050912, end: 20051214
  13. ADRIAMYCIN [Concomitant]
     Active Substance: DOXORUBICIN HYDROCHLORIDE
  14. GEMZAR [Concomitant]
     Active Substance: GEMCITABINE HYDROCHLORIDE
     Dosage: 28/DEC
     Route: 042
  15. CYCLOPHOSPHAMIDE. [Concomitant]
     Active Substance: CYCLOPHOSPHAMIDE
     Route: 065
     Dates: start: 1997
  16. ARANESP [Concomitant]
     Active Substance: DARBEPOETIN ALFA
     Route: 065
  17. AROMASIN [Concomitant]
     Active Substance: EXEMESTANE
  18. AREDIA [Concomitant]
     Active Substance: PAMIDRONATE DISODIUM
     Route: 065
  19. MEGACE [Concomitant]
     Active Substance: MEGESTROL ACETATE
  20. TAXOTERE [Concomitant]
     Active Substance: DOCETAXEL
     Route: 065
     Dates: start: 2003
  21. DECADRON [Concomitant]
     Active Substance: DEXAMETHASONE
     Route: 065

REACTIONS (19)
  - Lymphadenopathy mediastinal [Unknown]
  - Limb discomfort [Unknown]
  - Decreased appetite [Unknown]
  - Death [Fatal]
  - Skin discolouration [Unknown]
  - Pain [Unknown]
  - Depression [Unknown]
  - Disease progression [Unknown]
  - Abdominal distension [Unknown]
  - Pericardial effusion [Unknown]
  - Fatigue [Unknown]
  - Tumour marker increased [Unknown]
  - Abdominal tenderness [Unknown]
  - Pleural effusion [Unknown]
  - Abdominal discomfort [Unknown]
  - Back pain [Unknown]
  - Dyspnoea exertional [Unknown]
  - Weight decreased [Unknown]
  - Dyspnoea [Unknown]

NARRATIVE: CASE EVENT DATE: 200502
